FAERS Safety Report 5811047-2 (Version None)
Quarter: 2008Q3

REPORT INFORMATION
  Report Type: 
  Country: None (occurrence: None)
  Receive Date: 20080710
  Receipt Date: 20080704
  Transmission Date: 20090109
  Serious: Yes (Other)
  Sender: FDA-Public Use
  Company Number: 2008SP013165

PATIENT
  Age: 57 Year
  Sex: Male
  Weight: 50 kg

DRUGS (5)
  1. PEG INTERON (PEGINTERFERON ALFA-2B) (PEGINTERFERON ALFA-2B) [Suspect]
     Indication: HEPATITIS C
     Dosage: 100 MCG; QW; SC
     Route: 058
     Dates: start: 20080325, end: 20080624
  2. REBETOL [Suspect]
     Indication: HEPATITIS C
     Dosage: 200 MG; QD; PO
     Route: 048
     Dates: start: 20080325, end: 20080701
  3. CYANOCOBALAMIN [Concomitant]
  4. HALCION [Concomitant]
  5. NEOMALLERMIN-TR [Concomitant]

REACTIONS (1)
  - PARKINSONISM [None]
